FAERS Safety Report 5919012-1 (Version None)
Quarter: 2008Q4

REPORT INFORMATION
  Report Type: 
  Country: None (occurrence: None)
  Receive Date: 20081014
  Receipt Date: 20081014
  Transmission Date: 20090506
  Serious: Yes (Other)
  Sender: FDA-Public Use
  Company Number: None

PATIENT
  Age: 57 Year
  Sex: Male
  Weight: 90.7194 kg

DRUGS (2)
  1. ENALAPRIL MALEATE [Suspect]
     Indication: HYPERTENSION
     Dosage: ENALAPRIL 25 MG. 2 X DAILY PO, STILL ON THESE DRUGS
     Route: 048
     Dates: start: 20070202, end: 20081011
  2. HYDROCHLOROTHIAZIDE [Suspect]
     Dosage: 25 MG. 1 X DAILY PO, TAKING THE ENTIRE PILL
     Route: 048
     Dates: start: 20070202, end: 20080911

REACTIONS (7)
  - ABNORMAL BEHAVIOUR [None]
  - INAPPROPRIATE SCHEDULE OF DRUG ADMINISTRATION [None]
  - MENTAL DISORDER [None]
  - SCREAMING [None]
  - SLEEP DISORDER [None]
  - SUICIDAL IDEATION [None]
  - TREATMENT NONCOMPLIANCE [None]
